FAERS Safety Report 23655515 (Version 1)
Quarter: 2024Q1

REPORT INFORMATION
  Report Type: Spontaneous
  Country: US (occurrence: US)
  Receive Date: 20240320
  Receipt Date: 20240320
  Transmission Date: 20240410
  Serious: Yes (Other)
  Sender: FDA-Public Use
  Company Number: US-BRISTOL-MYERS SQUIBB COMPANY-2024-044191

PATIENT
  Age: 76 Year
  Sex: Female

DRUGS (1)
  1. POMALYST [Suspect]
     Active Substance: POMALIDOMIDE
     Indication: Plasma cell myeloma
     Dosage: FREQUENCY: TAKE 1 CAPSULE BY MOUTH WHOLE W/ WATER, 2 HRS FROM MEAL, AT SAME TIME DAILY ON DAYS 1-21
     Route: 048

REACTIONS (4)
  - Product dose omission issue [Recovered/Resolved]
  - Illness [Unknown]
  - Gastrointestinal disorder [Unknown]
  - Product use issue [Recovered/Resolved]
